FAERS Safety Report 5854345-9 (Version None)
Quarter: 2008Q3

REPORT INFORMATION
  Report Type: 
  Country: None (occurrence: None)
  Receive Date: 20080822
  Receipt Date: 20080819
  Transmission Date: 20090109
  Serious: No
  Sender: FDA-Public Use
  Company Number: US-BOEHRINGER INGELHEIM GMBH, GERMANY-2008-BP-12314BP

PATIENT
  Sex: Male

DRUGS (4)
  1. SPIRIVA [Suspect]
     Indication: DYSPNOEA
     Route: 055
     Dates: start: 20080725, end: 20080731
  2. COUMADIN [Concomitant]
     Indication: THROMBOSIS
     Route: 048
     Dates: start: 20080101
  3. LOMOTIL [Concomitant]
     Indication: DIARRHOEA
     Route: 048
  4. BELLA ALK /PE [Concomitant]
     Indication: DIARRHOEA
     Route: 048
     Dates: start: 20010101

REACTIONS (4)
  - DRY MOUTH [None]
  - DYSURIA [None]
  - THROAT IRRITATION [None]
  - VISION BLURRED [None]
